FAERS Safety Report 18178152 (Version 1)
Quarter: 2020Q3

REPORT INFORMATION
  Report Type: Spontaneous
  Country: TR (occurrence: TR)
  Receive Date: 20200821
  Receipt Date: 20200821
  Transmission Date: 20201103
  Serious: Yes (Hospitalization)
  Sender: FDA-Public Use
  Company Number: TR-KADMON PHARMACEUTICALS, LLC-KDM-202008-00084

PATIENT
  Age: 16 Year
  Sex: Male

DRUGS (1)
  1. TRIENTINE [Suspect]
     Active Substance: TRIENTINE
     Route: 048

REACTIONS (3)
  - Myoclonus [Unknown]
  - Rhabdomyolysis [Unknown]
  - Anuria [Unknown]
